FAERS Safety Report 4283100-9 (Version None)
Quarter: 2004Q1

REPORT INFORMATION
  Report Type: 
  Country: None (occurrence: None)
  Receive Date: 20040129
  Receipt Date: 20040126
  Transmission Date: 20041129
  Serious: Yes (Other)
  Sender: FDA-Public Use
  Company Number: 2004192833US

PATIENT
  Age: 58 Year
  Sex: Female

DRUGS (2)
  1. XALATAN [Suspect]
     Indication: OPEN ANGLE GLAUCOMA
     Dosage: 1 GTT, HS, OPHTHALMIC
     Route: 047
     Dates: start: 20030908, end: 20030911
  2. GLUCOSAMINE [Concomitant]

REACTIONS (2)
  - DEAFNESS UNILATERAL [None]
  - DRUG TOXICITY [None]
